FAERS Safety Report 5368090-X (Version None)
Quarter: 2007Q2

REPORT INFORMATION
  Report Type: 
  Country: None (occurrence: None)
  Receive Date: 20070622
  Receipt Date: 20070613
  Transmission Date: 20071010
  Serious: Yes (Hospitalization)
  Sender: FDA-Public Use
  Company Number: CM-MERCK-0706USA02254

PATIENT
  Age: 27 Year
  Sex: Female
  Weight: 60 kg

DRUGS (1)
  1. STROMECTOL [Suspect]
     Route: 048
     Dates: start: 20070525, end: 20070525

REACTIONS (4)
  - ANOREXIA [None]
  - ASTHENIA [None]
  - CONJUNCTIVAL HAEMORRHAGE [None]
  - PYREXIA [None]
